FAERS Safety Report 23951912 (Version 2)
Quarter: 2024Q2

REPORT INFORMATION
  Report Type: Spontaneous
  Country: US (occurrence: US)
  Receive Date: 20240607
  Receipt Date: 20240611
  Transmission Date: 20240716
  Serious: No
  Sender: FDA-Public Use
  Company Number: US-MYLANLABS-2024M1049207

PATIENT
  Age: 53 Year
  Sex: Female

DRUGS (1)
  1. TYRVAYA [Suspect]
     Active Substance: VARENICLINE TARTRATE
     Indication: Product used for unknown indication
     Dosage: 0.03 MILLIGRAM
     Route: 045
     Dates: start: 202402, end: 20240528

REACTIONS (6)
  - Headache [Unknown]
  - Dry throat [Unknown]
  - Paranasal sinus hyposecretion [Unknown]
  - Nasal discomfort [Unknown]
  - Throat irritation [Unknown]
  - Drug ineffective [Unknown]

NARRATIVE: CASE EVENT DATE: 20240201
